FAERS Safety Report 25405322 (Version 1)
Quarter: 2025Q2

REPORT INFORMATION
  Report Type: Spontaneous
  Country: FR (occurrence: FR)
  Receive Date: 20250606
  Receipt Date: 20250606
  Transmission Date: 20250716
  Serious: Yes (Other)
  Sender: AUROBINDO
  Company Number: FR-AFSSAPS-DJ2025000853

PATIENT
  Age: 23 Year
  Sex: Female

DRUGS (1)
  1. PAROXETINE [Suspect]
     Active Substance: PAROXETINE
     Indication: Depression
     Dosage: 1 DOSAGE FORM, ONCE A DAY (1 CP LE MATIN)
     Route: 048
     Dates: start: 202306, end: 202403

REACTIONS (3)
  - Antidepressant discontinuation syndrome [Not Recovered/Not Resolved]
  - Libido decreased [Not Recovered/Not Resolved]
  - Anhedonia [Not Recovered/Not Resolved]

NARRATIVE: CASE EVENT DATE: 20240301
